FAERS Safety Report 5773501-1 (Version None)
Quarter: 2008Q2

REPORT INFORMATION
  Report Type: 
  Country: None (occurrence: None)
  Receive Date: 20080601
  Receipt Date: 20080321
  Transmission Date: 20081010
  Serious: No
  Sender: FDA-Public Use
  Company Number: US200707006003

PATIENT
  Age: 48 Year
  Sex: Male
  Weight: 149.2 kg

DRUGS (4)
  1. BYETTA [Suspect]
     Indication: TYPE 2 DIABETES MELLITUS
     Dosage: 5 UG, 2/D, SUBCUTANEOUS ; 10 UG, 2/D, SUBCUTANEOUS
     Route: 058
     Dates: start: 20070712, end: 20070101
  2. BYETTA [Suspect]
     Indication: TYPE 2 DIABETES MELLITUS
     Dosage: 5 UG, 2/D, SUBCUTANEOUS ; 10 UG, 2/D, SUBCUTANEOUS
     Route: 058
     Dates: start: 20070101
  3. GLYBURIDE [Concomitant]
  4. AVANDIA [Concomitant]

REACTIONS (4)
  - ABDOMINAL DISTENSION [None]
  - DECREASED APPETITE [None]
  - EARLY SATIETY [None]
  - WEIGHT DECREASED [None]
